FAERS Safety Report 11151123 (Version 2)
Quarter: 2015Q2

REPORT INFORMATION
  Report Type: Spontaneous
  Country: PE (occurrence: PE)
  Receive Date: 20150601
  Receipt Date: 20150616
  Transmission Date: 20150821
  Serious: Yes (Other)
  Sender: FDA-Public Use
  Company Number: PE-PFIZER INC-2015178516

PATIENT
  Age: 89 Year
  Sex: Female

DRUGS (2)
  1. XALATAN [Suspect]
     Active Substance: LATANOPROST
     Indication: GLAUCOMA
     Dosage: 1 GTT, DAILY
     Route: 047
  2. KRYTANTEK [Concomitant]
     Dosage: 1 GTT, 2X/DAY (1 DROP AT THE MORNING AND 1 DROP AT THE NIGHT)
     Route: 047

REACTIONS (1)
  - No adverse event [Recovered/Resolved]
